FAERS Safety Report 25082580 (Version 1)
Quarter: 2025Q1

REPORT INFORMATION
  Report Type: Spontaneous
  Country: JP (occurrence: JP)
  Receive Date: 20250317
  Receipt Date: 20250317
  Transmission Date: 20250409
  Serious: Yes (Hospitalization)
  Sender: GLAXOSMITHKLINE
  Company Number: JP-GSK-JP2025JPN029360

PATIENT

DRUGS (4)
  1. SULTANOL [Suspect]
     Active Substance: ALBUTEROL SULFATE
     Route: 055
  2. SERETIDE [Suspect]
     Active Substance: FLUTICASONE PROPIONATE\SALMETEROL XINAFOATE
  3. TULOBUTEROL [Suspect]
     Active Substance: TULOBUTEROL
  4. MONTELUKAST [Concomitant]
     Active Substance: MONTELUKAST
     Indication: Asthma

REACTIONS (2)
  - Asthma [Unknown]
  - Supraventricular tachycardia [Recovering/Resolving]
